FAERS Safety Report 8212803-6 (Version None)
Quarter: 2012Q1

REPORT INFORMATION
  Report Type: 
  Country: None (occurrence: None)
  Receive Date: 20120315
  Receipt Date: 20120312
  Transmission Date: 20120608
  Serious: No
  Sender: FDA-Public Use
  Company Number: US-PFIZER INC-2012065660

PATIENT
  Sex: Female

DRUGS (1)
  1. CELEBREX [Suspect]
     Dosage: UNK

REACTIONS (8)
  - CHEST DISCOMFORT [None]
  - PRURITUS [None]
  - DRY SKIN [None]
  - ARTHRALGIA [None]
  - DRY EYE [None]
  - FATIGUE [None]
  - BACK PAIN [None]
  - URINE ODOUR ABNORMAL [None]
